FAERS Safety Report 10185417 (Version 2)
Quarter: 2014Q2

REPORT INFORMATION
  Report Type: Spontaneous
  Country: US (occurrence: None)
  Receive Date: 20140519
  Receipt Date: 20140616
  Transmission Date: 20141212
  Serious: No
  Sender: FDA-Public Use
  Company Number: 2014-00067

PATIENT
  Age: 62 Year
  Sex: Female
  Weight: 72.58 kg

DRUGS (4)
  1. ZICAM COLD REMEDY RAPIDMELTS [Suspect]
     Indication: NASOPHARYNGITIS
     Dosage: 1 RAPIDMELT, ORALLY
     Route: 048
     Dates: start: 20131120, end: 20140505
  2. ZICAM COLD REMEDY RAPIDMELTS [Suspect]
     Indication: INFLUENZA
     Dosage: 1 RAPIDMELT, ORALLY
     Route: 048
     Dates: start: 20131120, end: 20140505
  3. B-COMPLEX VITAMIN [Concomitant]
  4. ATENOLOL [Concomitant]

REACTIONS (2)
  - Ageusia [None]
  - Swollen tongue [None]
